FAERS Safety Report 18061775 (Version 1)
Quarter: 2020Q3

REPORT INFORMATION
  Report Type: Spontaneous
  Country: US (occurrence: US)
  Receive Date: 20200723
  Receipt Date: 20200723
  Transmission Date: 20201103
  Serious: No
  Sender: FDA-Public Use
  Company Number: US-BIOGEN-2020BI00900876

PATIENT
  Sex: Male

DRUGS (1)
  1. TYSABRI [Suspect]
     Active Substance: NATALIZUMAB
     Indication: MULTIPLE SCLEROSIS
     Route: 065
     Dates: start: 20200206

REACTIONS (4)
  - Dizziness [Unknown]
  - Memory impairment [Not Recovered/Not Resolved]
  - Tinnitus [Unknown]
  - Musculoskeletal disorder [Recovered/Resolved]
